FAERS Safety Report 9372123 (Version 4)
Quarter: 2014Q1

REPORT INFORMATION
  Report Type: Spontaneous
  Country: AT (occurrence: AT)
  Receive Date: 20130627
  Receipt Date: 20140226
  Transmission Date: 20141002
  Serious: Yes (Other)
  Sender: FDA-Public Use
  Company Number: AT-SANOFI-AVENTIS-2013SA063180

PATIENT
  Age: 65 Year
  Sex: Female

DRUGS (29)
  1. DEPAKINE CHRONO RETARD [Suspect]
     Indication: PRODUCT USED FOR UNKNOWN INDICATION
     Route: 065
     Dates: start: 20130404, end: 20130407
  2. DEPAKINE CHRONO RETARD [Interacting]
     Indication: PRODUCT USED FOR UNKNOWN INDICATION
     Route: 065
     Dates: start: 20130408, end: 20130410
  3. DEPAKINE CHRONO RETARD [Interacting]
     Indication: PRODUCT USED FOR UNKNOWN INDICATION
     Route: 065
     Dates: start: 20130411, end: 20130425
  4. DEPAKINE CHRONO RETARD [Interacting]
     Indication: PRODUCT USED FOR UNKNOWN INDICATION
     Route: 065
     Dates: start: 20130426
  5. DEPAKINE CHRONO RETARD [Interacting]
     Indication: PRODUCT USED FOR UNKNOWN INDICATION
     Route: 065
     Dates: start: 20130513
  6. PLAVIX [Suspect]
     Indication: PRODUCT USED FOR UNKNOWN INDICATION
     Route: 048
     Dates: start: 20130325
  7. VENLAFAXINE [Suspect]
     Indication: PRODUCT USED FOR UNKNOWN INDICATION
     Route: 065
     Dates: start: 201210, end: 20130311
  8. VENLAFAXINE [Suspect]
     Indication: PRODUCT USED FOR UNKNOWN INDICATION
     Route: 065
     Dates: start: 20130312, end: 20130423
  9. VENLAFAXINE [Suspect]
     Indication: PRODUCT USED FOR UNKNOWN INDICATION
     Route: 065
     Dates: end: 20130511
  10. SEROQUEL [Suspect]
     Indication: PRODUCT USED FOR UNKNOWN INDICATION
     Route: 065
     Dates: start: 20130307, end: 20130310
  11. SEROQUEL [Suspect]
     Indication: PRODUCT USED FOR UNKNOWN INDICATION
     Route: 065
     Dates: start: 20130515
  12. SEROQUEL [Suspect]
     Indication: PRODUCT USED FOR UNKNOWN INDICATION
     Route: 065
     Dates: start: 20130314, end: 20130514
  13. SEROQUEL [Suspect]
     Indication: PRODUCT USED FOR UNKNOWN INDICATION
     Route: 065
     Dates: start: 20130311, end: 20130314
  14. ACEMIN [Suspect]
     Indication: HYPERTENSION
     Route: 065
     Dates: start: 20130324, end: 20130429
  15. RIVOTRIL [Suspect]
     Indication: PRODUCT USED FOR UNKNOWN INDICATION
     Route: 065
  16. LAMICTAL [Suspect]
     Indication: PRODUCT USED FOR UNKNOWN INDICATION
     Route: 065
     Dates: start: 20130418, end: 20130422
  17. LAMICTAL [Suspect]
     Indication: PRODUCT USED FOR UNKNOWN INDICATION
     Route: 065
     Dates: start: 201210, end: 20130417
  18. FOLSAN [Concomitant]
     Indication: PRODUCT USED FOR UNKNOWN INDICATION
     Dosage: STRENGTH 5 MG
     Route: 065
     Dates: start: 2012
  19. NOCUTIL [Concomitant]
     Indication: PRODUCT USED FOR UNKNOWN INDICATION
     Route: 065
     Dates: start: 2012
  20. PANTOLOC [Concomitant]
     Indication: PRODUCT USED FOR UNKNOWN INDICATION
     Route: 065
     Dates: start: 20130330
  21. PANTOLOC [Concomitant]
     Indication: PRODUCT USED FOR UNKNOWN INDICATION
     Route: 065
     Dates: start: 2012, end: 20130329
  22. SORTIS [Concomitant]
     Dates: start: 20130322, end: 20130324
  23. SORTIS [Concomitant]
     Dates: start: 20130325
  24. MAGNESIUM CARBONATE/MAGNESIUM OXIDE [Concomitant]
     Dates: start: 2012
  25. NEUROBION FORTE [Concomitant]
     Dates: start: 2012
  26. NITROLINGUAL [Concomitant]
     Dosage: FORM: PUMPSPRAY
     Dates: start: 2012
  27. SEROQUEL [Concomitant]
     Dates: start: 20130307, end: 20130310
  28. SEROQUEL [Concomitant]
     Dates: start: 20130311, end: 20130314
  29. ZOLPIDEM [Concomitant]
     Dates: start: 20130318, end: 20130513

REACTIONS (9)
  - Carotid artery thrombosis [Unknown]
  - Dysgeusia [Recovering/Resolving]
  - Cerebral atrophy [Unknown]
  - Dry mouth [Unknown]
  - Nausea [Unknown]
  - Bacterial vaginosis [Unknown]
  - Vaginal discharge [Unknown]
  - Cerebral microangiopathy [Unknown]
  - Atrophic vulvovaginitis [Unknown]
